FAERS Safety Report 6960073-9 (Version None)
Quarter: 2010Q3

REPORT INFORMATION
  Report Type: 
  Country: None (occurrence: None)
  Receive Date: 20100901
  Receipt Date: 20100827
  Transmission Date: 20110219
  Serious: Yes (Life-Threatening, Hospitalization)
  Sender: FDA-Public Use
  Company Number: US-ROXANE LABORATORIES, INC.-2010-RO-01148RO

PATIENT
  Age: 50 Year
  Sex: Female

DRUGS (3)
  1. LITHIUM CARBONATE [Suspect]
  2. FUROSEMIDE [Suspect]
  3. BETA BLOCKER [Suspect]

REACTIONS (5)
  - BRADYCARDIA [None]
  - CARDIAC ARREST [None]
  - NEUROTOXICITY [None]
  - OVERDOSE [None]
  - THERAPEUTIC AGENT TOXICITY [None]
